FAERS Safety Report 6248669-3 (Version None)
Quarter: 2009Q2

REPORT INFORMATION
  Report Type: 
  Country: None (occurrence: None)
  Receive Date: 20090624
  Receipt Date: 20090624
  Transmission Date: 20091009
  Serious: No
  Sender: FDA-Public Use
  Company Number: None

PATIENT
  Age: 73 Year
  Sex: Female
  Weight: 57 kg

DRUGS (17)
  1. LANTUS [Suspect]
     Indication: TYPE 2 DIABETES MELLITUS
     Dosage: 22 UNITS SQ QHS
     Route: 058
     Dates: start: 20090515, end: 20090517
  2. HEPARIN [Concomitant]
  3. ALLOPURINOL [Concomitant]
  4. ASPIRIN [Concomitant]
  5. CARVEDILOL [Concomitant]
  6. FISH OIL [Concomitant]
  7. FUROSEMIDE [Concomitant]
  8. HYDRALAZINE HCL [Concomitant]
  9. IMDUR [Concomitant]
  10. NESIRITIDE [Concomitant]
  11. NIACIN [Concomitant]
  12. POTASSIUM CHLORIDE [Concomitant]
  13. ROSUVASTATIN CALCIUM [Concomitant]
  14. SERTRALINE [Concomitant]
  15. SPIRONOLACTONE [Concomitant]
  16. ADVAIR HFA [Concomitant]
  17. TITROSIUM [Concomitant]

REACTIONS (4)
  - BLOOD GLUCOSE DECREASED [None]
  - BLOOD GLUCOSE INCREASED [None]
  - CARDIAC FAILURE [None]
  - MENTAL STATUS CHANGES [None]
